FAERS Safety Report 6365509-2 (Version None)
Quarter: 2009Q3

REPORT INFORMATION
  Report Type: 
  Country: None (occurrence: None)
  Receive Date: 20090919
  Receipt Date: 20090817
  Transmission Date: 20100115
  Serious: Yes (Other)
  Sender: FDA-Public Use
  Company Number: US-ABBOTT-09P-163-0592054-00

PATIENT
  Sex: Male

DRUGS (2)
  1. HUMIRA [Suspect]
     Indication: PSORIASIS
     Route: 058
     Dates: start: 20080702, end: 20090707
  2. HUMIRA [Suspect]
     Route: 058
     Dates: start: 20090721

REACTIONS (7)
  - ARTHRALGIA [None]
  - BACK PAIN [None]
  - DYSURIA [None]
  - INFECTED VARICOSE VEIN [None]
  - POLLAKIURIA [None]
  - SCAB [None]
  - VEIN PAIN [None]
